FAERS Safety Report 7113306-2 (Version None)
Quarter: 2010Q4

REPORT INFORMATION
  Report Type: 
  Country: None (occurrence: None)
  Receive Date: 20101119
  Receipt Date: 20100816
  Transmission Date: 20110411
  Serious: No
  Sender: FDA-Public Use
  Company Number: A0876106A

PATIENT
  Age: 46 Year
  Sex: Male

DRUGS (4)
  1. WELLBUTRIN SR [Suspect]
     Indication: DEPRESSION
     Dosage: 150MG TWICE PER DAY
     Route: 048
     Dates: start: 19980101
  2. ZOLOFT [Concomitant]
  3. TEGRETOL [Concomitant]
  4. SIMVASTATIN [Concomitant]

REACTIONS (2)
  - ENERGY INCREASED [None]
  - INSOMNIA [None]
